FAERS Safety Report 10372800 (Version 1)
Quarter: 2014Q3

REPORT INFORMATION
  Report Type: Spontaneous
  Country: US (occurrence: US)
  Receive Date: 20140808
  Receipt Date: 20140808
  Transmission Date: 20150326
  Serious: No
  Sender: FDA-Public Use
  Company Number: US-BRISTOL-MYERS SQUIBB COMPANY-19449578

PATIENT
  Age: 52 Year
  Sex: Female
  Weight: 99.77 kg

DRUGS (12)
  1. RESTORIL [Concomitant]
     Active Substance: TEMAZEPAM
     Dosage: CAPSULE
  2. SYNTHROID [Concomitant]
     Active Substance: LEVOTHYROXINE SODIUM
     Dosage: TABLET
  3. CYTOMEL [Concomitant]
     Active Substance: LIOTHYRONINE SODIUM
     Dosage: TABLET
  4. TOPAMAX [Concomitant]
     Active Substance: TOPIRAMATE
     Dosage: TABLET
  5. FIORINAL [Concomitant]
     Active Substance: ASPIRIN\BUTALBITAL\CAFFEINE
     Dosage: CAPSULE
  6. VITAMIN D [Concomitant]
     Active Substance: CHOLECALCIFEROL
     Dosage: 1DF=50000 UNIT, CAPSULE
  7. CALCIUM [Concomitant]
     Active Substance: CALCIUM
     Dosage: 1DF= 500, TABLET
  8. SPRYCEL [Suspect]
     Active Substance: DASATINIB
     Indication: CHRONIC MYELOID LEUKAEMIA
     Dosage: TAKE 1 TABLET BY MOUTH DAILY.
  9. CYMBALTA [Concomitant]
     Active Substance: DULOXETINE HYDROCHLORIDE
     Dosage: CAPSULE
  10. XANAX [Concomitant]
     Active Substance: ALPRAZOLAM
     Dosage: TABLET
  11. PREDNISONE. [Concomitant]
     Active Substance: PREDNISONE
     Dosage: TABLET
  12. TRAMADOL HCL [Concomitant]
     Active Substance: TRAMADOL HYDROCHLORIDE
     Dosage: TABLET

REACTIONS (3)
  - Dyspnoea [Unknown]
  - Alopecia [Unknown]
  - Dyspepsia [Unknown]

NARRATIVE: CASE EVENT DATE: 20130903
